FAERS Safety Report 17491905 (Version 1)
Quarter: 2020Q1

REPORT INFORMATION
  Report Type: Spontaneous
  Country: NL (occurrence: NL)
  Receive Date: 20200304
  Receipt Date: 20200304
  Transmission Date: 20200409
  Serious: Yes (Other)
  Sender: FDA-Public Use
  Company Number: NL-AUROBINDO-AUR-APL-2020-010446

PATIENT
  Sex: Male
  Weight: 79 kg

DRUGS (4)
  1. METOPROLOL 25MG  PROLONGED-RELEASE TABLET [Suspect]
     Active Substance: METOPROLOL
     Indication: ATRIAL FIBRILLATION
  2. METOPROLOL 25MG  PROLONGED-RELEASE TABLET [Suspect]
     Active Substance: METOPROLOL
     Indication: HYPERTENSION
     Dosage: 25 MILLIGRAM, ONCE A DAY
     Route: 065
     Dates: start: 201902, end: 20190812
  3. LISINOPRIL. [Concomitant]
     Active Substance: LISINOPRIL
     Indication: PRODUCT USED FOR UNKNOWN INDICATION
     Dosage: 5 GRAM
     Route: 065
  4. FUROSEMIDE. [Concomitant]
     Active Substance: FUROSEMIDE
     Indication: PRODUCT USED FOR UNKNOWN INDICATION
     Dosage: 20 MILLIGRAM
     Route: 065

REACTIONS (2)
  - Myalgia [Recovered/Resolved]
  - Sudden onset of sleep [Unknown]
